FAERS Safety Report 10250633 (Version 2)
Quarter: 2014Q3

REPORT INFORMATION
  Report Type: Spontaneous
  Country: JP (occurrence: JP)
  Receive Date: 20140620
  Receipt Date: 20140717
  Transmission Date: 20150326
  Serious: Yes (Hospitalization, Other)
  Sender: FDA-Public Use
  Company Number: JP-BRISTOL-MYERS SQUIBB COMPANY-21041694

PATIENT
  Age: 73 Year
  Sex: Male
  Weight: 45 kg

DRUGS (19)
  1. REBAMIPIDE [Concomitant]
     Active Substance: REBAMIPIDE
  2. MICARDIS [Concomitant]
     Active Substance: TELMISARTAN
  3. PURSENNID [Concomitant]
     Active Substance: SENNOSIDES A AND B CALCIUM
  4. CELECOXIB. [Concomitant]
     Active Substance: CELECOXIB
  5. XARELTO [Concomitant]
     Active Substance: RIVAROXABAN
  6. DEPAKENE [Concomitant]
     Active Substance: VALPROIC ACID
  7. BAYASPIRIN [Concomitant]
     Active Substance: ASPIRIN
  8. EPERISONE HCL [Concomitant]
  9. URINORM [Concomitant]
     Active Substance: BENZBROMARONE
  10. ROZEREM [Concomitant]
     Active Substance: RAMELTEON
  11. ELIQUIS [Suspect]
     Active Substance: APIXABAN
     Dosage: TABLET
     Route: 048
  12. MENESIT [Concomitant]
     Active Substance: CARBIDOPA\LEVODOPA
  13. HALCION [Concomitant]
     Active Substance: TRIAZOLAM
  14. MIRAPEX [Concomitant]
     Active Substance: PRAMIPEXOLE DIHYDROCHLORIDE
  15. BERAPROST SODIUM [Concomitant]
     Active Substance: BERAPROST SODIUM
  16. MAGLAX [Concomitant]
     Active Substance: MAGNESIUM OXIDE
  17. IMIDAFENACIN [Concomitant]
     Active Substance: IMIDAFENACIN
  18. ALFACALCIDOL [Concomitant]
     Active Substance: ALFACALCIDOL
  19. ALENDRONATE [Concomitant]
     Active Substance: ALENDRONATE SODIUM

REACTIONS (2)
  - Cerebral haemorrhage [Recovering/Resolving]
  - Pancytopenia [Recovering/Resolving]

NARRATIVE: CASE EVENT DATE: 20140520
